FAERS Safety Report 8352585-0 (Version None)
Quarter: 2012Q2

REPORT INFORMATION
  Report Type: 
  Country: None (occurrence: None)
  Receive Date: 20120511
  Receipt Date: 20120305
  Transmission Date: 20120825
  Serious: No
  Sender: FDA-Public Use
  Company Number: US-COVIDIEN/TYCO HEALTHCARE/MALLINCKRODT-T201201012

PATIENT
  Sex: Female

DRUGS (4)
  1. TRAMADOL HYDROCHLORIDE [Suspect]
     Indication: BREAKTHROUGH PAIN
     Dosage: UNK, PRN
     Route: 048
  2. ALL OTHER THERAPEUTIC PRODUCTS [Suspect]
     Indication: DIABETES MELLITUS
     Dosage: UNK
  3. FENTANYL-100 [Suspect]
     Indication: PAIN
     Dosage: 125 MCG Q72 HOURS
     Route: 062
     Dates: start: 20111201, end: 20120303
  4. FENTANYL CITRATE [Suspect]
     Indication: PAIN
     Dosage: 150 MCG Q72 HOURS
     Route: 062
     Dates: end: 20111201

REACTIONS (5)
  - RASH [None]
  - ARTHROPATHY [None]
  - DRUG EFFECT DECREASED [None]
  - WITHDRAWAL SYNDROME [None]
  - APPLICATION SITE PAIN [None]
